FAERS Safety Report 18661776 (Version 1)
Quarter: 2020Q4

REPORT INFORMATION
  Report Type: Spontaneous
  Country: DE (occurrence: DE)
  Receive Date: 20201224
  Receipt Date: 20201224
  Transmission Date: 20210114
  Serious: Yes (Other)
  Sender: FDA-Public Use
  Company Number: DE-JNJFOC-20201225429

PATIENT
  Sex: Male

DRUGS (4)
  1. IMODIUM AKUT [Suspect]
     Active Substance: LOPERAMIDE
     Dosage: 2 MG (1-1-1 DAILY)
     Route: 048
     Dates: start: 202009, end: 202011
  2. DULOXETINE. [Suspect]
     Active Substance: DULOXETINE
     Indication: PRODUCT USED FOR UNKNOWN INDICATION
     Dates: start: 2010
  3. DULOXETINE. [Suspect]
     Active Substance: DULOXETINE
     Dates: start: 202009, end: 202011
  4. IMODIUM AKUT [Suspect]
     Active Substance: LOPERAMIDE
     Indication: PRODUCT USED FOR UNKNOWN INDICATION
     Dosage: 2 MG (1-1-1 DAILY)
     Route: 048
     Dates: start: 2010

REACTIONS (5)
  - Peripheral swelling [Recovering/Resolving]
  - Pain in extremity [Recovering/Resolving]
  - Arthralgia [Recovering/Resolving]
  - Musculoskeletal stiffness [Not Recovered/Not Resolved]
  - Loss of personal independence in daily activities [Unknown]
